FAERS Safety Report 6784642-4 (Version None)
Quarter: 2010Q2

REPORT INFORMATION
  Report Type: 
  Country: None (occurrence: None)
  Receive Date: 20100622
  Receipt Date: 20100614
  Transmission Date: 20101027
  Serious: Yes (Hospitalization)
  Sender: FDA-Public Use
  Company Number: B0647355B

PATIENT
  Sex: Female
  Weight: 85.6 kg

DRUGS (2)
  1. LAPATINIB [Suspect]
     Dosage: 1250MG PER DAY
     Route: 048
     Dates: start: 20100330
  2. DOCETAXEL [Suspect]
     Dosage: 115MG EVERY 3 WEEKS
     Route: 042
     Dates: start: 20100330

REACTIONS (3)
  - DIARRHOEA [None]
  - NAUSEA [None]
  - NEUTROPENIA [None]
